FAERS Safety Report 5038377-9 (Version None)
Quarter: 2006Q2

REPORT INFORMATION
  Report Type: 
  Country: None (occurrence: None)
  Receive Date: 20060627
  Receipt Date: 20060627
  Transmission Date: 20061013
  Serious: Yes (Hospitalization)
  Sender: FDA-Public Use
  Company Number: None

PATIENT
  Age: 63 Year
  Sex: Male
  Weight: 69.4003 kg

DRUGS (1)
  1. NAPROXEN [Suspect]
     Dosage: 500 MG BID NG-TUBE

REACTIONS (6)
  - ABDOMINAL PAIN UPPER [None]
  - ASTHENIA [None]
  - DIZZINESS [None]
  - GASTROINTESTINAL HAEMORRHAGE [None]
  - HAEMATEMESIS [None]
  - PYREXIA [None]
